FAERS Safety Report 22292613 (Version 1)
Quarter: 2023Q2

REPORT INFORMATION
  Report Type: Spontaneous
  Country: GB (occurrence: GB)
  Receive Date: 20230508
  Receipt Date: 20230508
  Transmission Date: 20230721
  Serious: Yes (Other)
  Sender: FDA-Public Use
  Company Number: GB-GLAXOSMITHKLINE-GBCH2023HLN019993

PATIENT

DRUGS (1)
  1. NIQUITIN [Suspect]
     Active Substance: NICOTINE
     Indication: Nicotine dependence
     Dosage: UNK

REACTIONS (3)
  - Drug abuse [Unknown]
  - Euphoric mood [Unknown]
  - Nicotine dependence [Unknown]
